FAERS Safety Report 13594296 (Version 1)
Quarter: 2017Q2

REPORT INFORMATION
  Report Type: Report from Study
  Country: US (occurrence: US)
  Receive Date: 20170530
  Receipt Date: 20170530
  Transmission Date: 20170830
  Serious: Yes (Hospitalization)
  Sender: FDA-Public Use
  Company Number: US-ACTELION-A-US2017-154467

PATIENT
  Age: 58 Year
  Sex: Female

DRUGS (1)
  1. UPTRAVI [Suspect]
     Active Substance: SELEXIPAG
     Indication: PULMONARY ARTERIAL HYPERTENSION
     Dosage: 400 MCG, BID
     Route: 048
     Dates: start: 20170501, end: 20170510

REACTIONS (5)
  - Seizure [Unknown]
  - Gait disturbance [Unknown]
  - Dyspnoea [Unknown]
  - Fluid retention [Unknown]
  - Weight increased [Unknown]
